FAERS Safety Report 24332426 (Version 1)
Quarter: 2024Q3

REPORT INFORMATION
  Report Type: Spontaneous
  Country: IT (occurrence: IT)
  Receive Date: 20240918
  Receipt Date: 20240918
  Transmission Date: 20241016
  Serious: Yes (Other)
  Sender: ROCHE
  Company Number: None

PATIENT
  Age: 69 Year
  Sex: Male
  Weight: 83 kg

DRUGS (2)
  1. BEVACIZUMAB [Suspect]
     Active Substance: BEVACIZUMAB
     Indication: Hepatocellular carcinoma
     Dosage: 15MG/KG ADMINISTERED EVERY 21 DAYS (IN COMBINATION WITH ATEZOLIZUMAB)
     Route: 042
     Dates: start: 20230308, end: 20240821
  2. ATEZOLIZUMAB [Concomitant]
     Active Substance: ATEZOLIZUMAB
     Indication: Hepatocellular carcinoma
     Dosage: 1200MG EVERY 21 DAYS
     Route: 042

REACTIONS (1)
  - Erosive oesophagitis [Unknown]

NARRATIVE: CASE EVENT DATE: 20240821
